FAERS Safety Report 9195073 (Version 1)
Quarter: 2013Q1

REPORT INFORMATION
  Report Type: Spontaneous
  Country: US (occurrence: US)
  Receive Date: 20130328
  Receipt Date: 20130328
  Transmission Date: 20140127
  Serious: No
  Sender: FDA-Public Use
  Company Number: US-ALLERGAN-1216120US

PATIENT
  Age: 41 Year
  Sex: Female

DRUGS (4)
  1. LATISSE 0.03% [Suspect]
     Indication: GROWTH OF EYELASHES
     Dosage: 2 GTT, QHS
     Route: 061
  2. ALDACTONE                          /00006201/ [Concomitant]
     Indication: ACNE
     Dosage: 100 MG, BID
     Route: 048
  3. AMOXICILLIN [Concomitant]
     Indication: ACNE
     Dosage: UNK UNK, BID
     Route: 048
  4. REFRESH OPTIVE ADVANCED [Concomitant]
     Indication: DRY EYE
     Dosage: UNK, PRN
     Route: 047

REACTIONS (4)
  - Foreign body sensation in eyes [Recovering/Resolving]
  - Erythema [Recovering/Resolving]
  - Wrong technique in drug usage process [Unknown]
  - Expired drug administered [Unknown]
